FAERS Safety Report 5209988-2 (Version None)
Quarter: 2006Q4

REPORT INFORMATION
  Report Type: 
  Country: None (occurrence: None)
  Receive Date: 20061117
  Receipt Date: 20060517
  Transmission Date: 20070319
  Serious: Yes (Other)
  Sender: FDA-Public Use
  Company Number: 27621

PATIENT
  Age: 35 Year
  Sex: Female

DRUGS (1)
  1. ETOMIDATE [Suspect]
     Indication: ABDOMINAL PAIN UPPER
     Dosage: 20 MG
     Dates: start: 20060514, end: 20060517

REACTIONS (1)
  - DRUG INEFFECTIVE [None]
